FAERS Safety Report 4983772-7 (Version None)
Quarter: 2006Q1

REPORT INFORMATION
  Report Type: 
  Country: None (occurrence: None)
  Receive Date: 20060302
  Receipt Date: 20051013
  Transmission Date: 20060701
  Serious: No
  Sender: FDA-Public Use
  Company Number: 218616

PATIENT
  Age: 16 Year
  Sex: Male
  Weight: 59.1 kg

DRUGS (4)
  1. NUTROPIN [Suspect]
     Indication: GROWTH HORMONE DEFICIENCY
     Dosage: 3.4 MG, QD, SUBCUTANEOUS
     Route: 058
     Dates: start: 20020813
  2. ADDERALL (AMPHETAMINE ASPARTATE, AMPHETAMINE SULFATE, DEXTROAMPHETAMIN [Concomitant]
  3. SINGULAIR [Concomitant]
  4. XOLAIR [Concomitant]

REACTIONS (1)
  - ARTHRALGIA [None]
